FAERS Safety Report 19228593 (Version 2)
Quarter: 2022Q2

REPORT INFORMATION
  Report Type: Spontaneous
  Country: US (occurrence: None)
  Receive Date: 20210506
  Receipt Date: 20220426
  Transmission Date: 20220721
  Serious: No
  Sender: FDA-Public Use
  Company Number: US-ROCHE-2760234

PATIENT
  Sex: Female

DRUGS (2)
  1. ESBRIET [Suspect]
     Active Substance: PIRFENIDONE
     Indication: Idiopathic pulmonary fibrosis
     Route: 048
     Dates: start: 20201215
  2. ESBRIET [Suspect]
     Active Substance: PIRFENIDONE
     Indication: Idiopathic pulmonary fibrosis
     Dosage: 1 TABLET 3 A DAY FOR 7 DAYS, THEN 2 TABLET 3 TIMES A DAY THEN 3 TABLETS 3 TIMES A DAY THEREAFTER
     Route: 048

REACTIONS (4)
  - Adverse reaction [Unknown]
  - Nausea [Unknown]
  - Sleep disorder [Unknown]
  - Off label use [Unknown]
